FAERS Safety Report 20038634 (Version 2)
Quarter: 2022Q1

REPORT INFORMATION
  Report Type: Spontaneous
  Country: US (occurrence: US)
  Receive Date: 20211105
  Receipt Date: 20220225
  Transmission Date: 20220423
  Serious: Yes (Disabling)
  Sender: FDA-Public Use
  Company Number: US-AMERICAN REGENT INC-2021002879

PATIENT
  Age: 39 Year
  Sex: Female

DRUGS (9)
  1. FERRIC CARBOXYMALTOSE [Suspect]
     Active Substance: FERRIC CARBOXYMALTOSE
     Indication: Iron deficiency anaemia
     Dosage: UNK UNK, SINGLE
     Dates: start: 20171114, end: 20171114
  2. FERRIC CARBOXYMALTOSE [Suspect]
     Active Substance: FERRIC CARBOXYMALTOSE
     Dosage: 750 MG IN NS 250 ML OVER 15 MINUTES
     Route: 042
     Dates: start: 20171128, end: 20171128
  3. ASPIRIN [Concomitant]
     Active Substance: ASPIRIN
     Indication: Product used for unknown indication
     Dosage: 81 MILLIGRAM
     Route: 048
  4. PRILOSEC [Concomitant]
     Active Substance: OMEPRAZOLE MAGNESIUM
     Indication: Gastrooesophageal reflux disease
     Dosage: 20 MILLIGRAM, BID
     Route: 048
  5. VITAMIN D2 [Concomitant]
     Active Substance: ERGOCALCIFEROL
     Indication: Product used for unknown indication
     Dosage: 50000 INTERNATIONAL UNIT EVERY WEEK
     Route: 048
  6. BACTRIM DS [Concomitant]
     Active Substance: SULFAMETHOXAZOLE\TRIMETHOPRIM
     Indication: Product used for unknown indication
     Dosage: TAKE 1 TABLET TWO TIMES A DAY
     Route: 048
  7. VITAMIN B12 [Concomitant]
     Active Substance: CYANOCOBALAMIN
     Indication: Product used for unknown indication
     Dosage: TAKE 100 MICROGRAM DAILY
     Route: 048
  8. VITAMIN C + ROSEHIP [Concomitant]
     Indication: Product used for unknown indication
     Dosage: TAKE 1000 MILLIGRAM DAILY
     Route: 048
  9. VITAMIN A [Concomitant]
     Active Substance: VITAMIN A
     Indication: Product used for unknown indication
     Dosage: TAKE 25000 UNITS DAILY
     Route: 048

REACTIONS (11)
  - Pain [Not Recovered/Not Resolved]
  - Pain in extremity [Recovered/Resolved]
  - Muscle spasms [Recovered/Resolved]
  - Muscle strain [Recovered/Resolved]
  - Hypophosphataemia [Recovered/Resolved]
  - Back pain [Recovered/Resolved]
  - Arthralgia [Recovered/Resolved]
  - Emotional distress [Not Recovered/Not Resolved]
  - Partner stress [Not Recovered/Not Resolved]
  - Anhedonia [Not Recovered/Not Resolved]
  - Product quality issue [Unknown]

NARRATIVE: CASE EVENT DATE: 20171101
